FAERS Safety Report 7747970-1 (Version None)
Quarter: 2011Q3

REPORT INFORMATION
  Report Type: 
  Country: None (occurrence: None)
  Receive Date: 20110909
  Receipt Date: 20110821
  Transmission Date: 20111222
  Serious: Yes (Hospitalization)
  Sender: FDA-Public Use
  Company Number: 2011HGS-002475

PATIENT
  Age: 61 Year
  Sex: Female
  Weight: 65.1365 kg

DRUGS (18)
  1. REMERON [Concomitant]
  2. VENLAFAXINE ER (VENLAFAXINE) (VENLAFAXINE) [Concomitant]
  3. LISINOPRIL/HCTZ (PRINZIDE) (HYDROCHLOROTHIAZIDE, LISINOPRIL) [Concomitant]
  4. CLONIDINE [Concomitant]
  5. VIMPAT (ANTIEPILEPTICS) (LACOSAMIDE) [Concomitant]
  6. PREDNISONE [Concomitant]
  7. FOLIC ACID [Concomitant]
  8. HYDROXYCHLOROQUINE (HYDROXYCHLOROQUINE) (HYDROXYCHLOROQUINE) [Concomitant]
  9. UDAMIN (MULTIVITAMINS W/MINERALS) (VITAMINS NOS, MINERALS NOS) [Concomitant]
  10. OMEPRAZOLE [Concomitant]
  11. BENLYSTA [Suspect]
     Indication: SYSTEMIC LUPUS ERYTHEMATOSUS
     Dosage: 10 MG/KG, 1 IN 14 D, INTRAVENOUS DRIP
     Route: 041
     Dates: start: 20110818, end: 20110818
  12. METOPROLOL ER (METOPROLOL TARTRATE) (METOPROLOL TARTRATE) [Concomitant]
  13. AMLODIPINE [Concomitant]
  14. LEXAPRO (ESCITALOPRAM OXALATE) (ESCITALOPRAM OXALATE) [Concomitant]
  15. SUMATRIPTAN SUCCINATE [Concomitant]
  16. CARBAMAZEPINE [Concomitant]
  17. CRESTOR [Concomitant]
  18. FIORICET (AXOTAL /OLD FORM/) (CAFFEINE, BUTABITAL PARACETAMOL) [Concomitant]

REACTIONS (4)
  - DRUG SCREEN POSITIVE [None]
  - URINE LEUKOCYTE ESTERASE POSITIVE [None]
  - DIARRHOEA [None]
  - ABDOMINAL PAIN [None]
